FAERS Safety Report 6522267-6 (Version None)
Quarter: 2009Q4

REPORT INFORMATION
  Report Type: 
  Country: None (occurrence: None)
  Receive Date: 20091230
  Receipt Date: 20091224
  Transmission Date: 20100525
  Serious: Yes (Hospitalization)
  Sender: FDA-Public Use
  Company Number: GXKR2009AU05937

PATIENT
  Age: 64 Year
  Sex: Male

DRUGS (3)
  1. DOXYHEXAL (NGX) [Suspect]
     Indication: CONJUNCTIVITIS
     Dosage: 100 MG/DAY
     Route: 048
     Dates: start: 20090310
  2. DOXYHEXAL (NGX) [Suspect]
     Indication: PROPHYLAXIS URINARY TRACT INFECTION
  3. LEVOTHYROXINE SODIUM [Concomitant]
     Dosage: 50 UG/DAY
     Route: 065

REACTIONS (7)
  - ARTHROSCOPY [None]
  - BLOOD BLISTER [None]
  - GAIT DISTURBANCE [None]
  - HAEMARTHROSIS [None]
  - HAEMATOMA EVACUATION [None]
  - HAEMORRHAGE SUBCUTANEOUS [None]
  - PAIN [None]
